FAERS Safety Report 10619100 (Version 1)
Quarter: 2014Q4

REPORT INFORMATION
  Report Type: Spontaneous
  Country: US (occurrence: None)
  Receive Date: 20141126
  Receipt Date: 20141126
  Transmission Date: 20150529
  Serious: Yes (Other)
  Sender: FDA-Public Use
  Company Number: INT_00526_2014

PATIENT
  Age: 62 Year
  Sex: Female

DRUGS (2)
  1. CARBOPLATIN. [Suspect]
     Active Substance: CARBOPLATIN
     Indication: LUNG NEOPLASM MALIGNANT
     Dosage: AUC= 5 FREQUENCY UNKNOWN, 6 CYCLES
  2. PACLITAXEL (HQ SPECIALTY) [Suspect]
     Active Substance: PACLITAXEL
     Indication: LUNG NEOPLASM MALIGNANT
     Dosage: 175 MG/M2, FREQUENCY UNKNOWN, 6 CYCLES

REACTIONS (6)
  - Lung neoplasm malignant [None]
  - Pathological fracture [None]
  - Malignant neoplasm progression [None]
  - Back pain [None]
  - Colon neoplasm [None]
  - Chest pain [None]
